FAERS Safety Report 7739826-5 (Version None)
Quarter: 2011Q3

REPORT INFORMATION
  Report Type: 
  Country: None (occurrence: None)
  Receive Date: 20110909
  Receipt Date: 20110826
  Transmission Date: 20111222
  Serious: Yes (Hospitalization, Other)
  Sender: FDA-Public Use
  Company Number: PHHY2011DE79038

PATIENT
  Age: 5 Day
  Sex: Male

DRUGS (4)
  1. METOPROLOL TARTRATE [Suspect]
     Dosage: MATERNAL DOSE: 49.5 MG/DAY
     Route: 064
     Dates: start: 20100626, end: 20110217
  2. ACETAMINOPHEN [Concomitant]
     Indication: MIGRAINE
     Dosage: MATERNAL DOSE: 500 MG, 4-5 PILLS PER MONTH
  3. FOLIO [Concomitant]
     Indication: NEURAL TUBE DEFECT
     Dosage: MATERNAL DOSE: 0.4 MG/DAY
     Route: 064
     Dates: start: 20090601, end: 20100811
  4. NEBIVOLOL HCL [Concomitant]
     Indication: SUPRAVENTRICULAR TACHYCARDIA
     Dosage: MATERNAL DOSE: 2.5 MG/DAY
     Route: 064
     Dates: start: 20100509, end: 20100625

REACTIONS (2)
  - SUPRAVENTRICULAR TACHYCARDIA [None]
  - MATERNAL EXPOSURE DURING PREGNANCY [None]
